FAERS Safety Report 10394682 (Version 2)
Quarter: 2014Q3

REPORT INFORMATION
  Report Type: Spontaneous
  Country: US (occurrence: US)
  Receive Date: 20140820
  Receipt Date: 20140911
  Transmission Date: 20150326
  Serious: No
  Sender: FDA-Public Use
  Company Number: US-009507513-1408USA009657

PATIENT
  Sex: Female

DRUGS (2)
  1. MAGNESIUM SULFATE [Interacting]
     Active Substance: MAGNESIUM SULFATE
     Route: 042
  2. FUROSEMIDE. [Suspect]
     Active Substance: FUROSEMIDE
     Indication: DIURETIC THERAPY
     Route: 048

REACTIONS (2)
  - Drug interaction [Unknown]
  - Maternal exposure during pregnancy [Recovered/Resolved]
